FAERS Safety Report 17690702 (Version 1)
Quarter: 2020Q2

REPORT INFORMATION
  Report Type: Spontaneous
  Country: JP (occurrence: JP)
  Receive Date: 20200421
  Receipt Date: 20200421
  Transmission Date: 20200714
  Serious: Yes (Other)
  Sender: FDA-Public Use
  Company Number: NVSJ2020JP004497

PATIENT
  Sex: Female

DRUGS (1)
  1. GILENYA [Suspect]
     Active Substance: FINGOLIMOD HYDROCHLORIDE
     Indication: MULTIPLE SCLEROSIS
     Route: 048

REACTIONS (10)
  - Dysuria [Unknown]
  - Premature ageing [Unknown]
  - Expanded disability status scale score increased [Unknown]
  - Malaise [Unknown]
  - Palpitations [Unknown]
  - Neuromyelitis optica spectrum disorder [Unknown]
  - Menopausal symptoms [Unknown]
  - Temporomandibular joint syndrome [Unknown]
  - Nervous system disorder [Unknown]
  - Tooth fracture [Unknown]
